FAERS Safety Report 15574191 (Version 1)
Quarter: 2018Q4

REPORT INFORMATION
  Report Type: Spontaneous
  Country: US (occurrence: US)
  Receive Date: 20181101
  Receipt Date: 20181101
  Transmission Date: 20190205
  Serious: Yes (Death, Other)
  Sender: FDA-Public Use
  Company Number: US-ROCHE-2207974

PATIENT
  Sex: Male
  Weight: 58.11 kg

DRUGS (3)
  1. OPDIVO [Concomitant]
     Active Substance: NIVOLUMAB
     Dosage: 16 WEEKS ;ONGOING: NO
     Route: 065
  2. AVASTIN [Suspect]
     Active Substance: BEVACIZUMAB
     Indication: HEPATOCELLULAR CARCINOMA
     Dosage: ONGOING: NO
     Route: 042
     Dates: start: 201807
  3. AVASTIN [Suspect]
     Active Substance: BEVACIZUMAB
     Dosage: ONGOING: NO
     Route: 042
     Dates: start: 201806

REACTIONS (21)
  - Hepatocellular carcinoma [Fatal]
  - Off label use [Fatal]
  - Intentional product use issue [Unknown]
  - Dry skin [Unknown]
  - Confusional state [Unknown]
  - Skin irritation [Unknown]
  - Lacrimation disorder [Unknown]
  - Encephalopathy [Unknown]
  - Back pain [Unknown]
  - Headache [Unknown]
  - Rhinitis [Unknown]
  - Fatigue [Unknown]
  - Rhinorrhoea [Unknown]
  - Epistaxis [Unknown]
  - Enzyme level abnormal [Unknown]
  - Dermatitis exfoliative [Unknown]
  - Hypertension [Unknown]
  - Proteinuria [Unknown]
  - Dysgeusia [Unknown]
  - Decreased appetite [Unknown]
  - Tumour marker abnormal [Unknown]
